FAERS Safety Report 8435458-4 (Version None)
Quarter: 2012Q2

REPORT INFORMATION
  Report Type: 
  Country: None (occurrence: None)
  Receive Date: 20120614
  Receipt Date: 20120611
  Transmission Date: 20120825
  Serious: Yes (Other)
  Sender: FDA-Public Use
  Company Number: US-PFIZER INC-2012140364

PATIENT
  Sex: Female
  Weight: 90.703 kg

DRUGS (1)
  1. NEURONTIN [Suspect]
     Indication: NERVE INJURY
     Dosage: UNK, 1X/DAY
     Route: 048
     Dates: end: 20081201

REACTIONS (1)
  - BLADDER DISORDER [None]
